FAERS Safety Report 25298068 (Version 1)
Quarter: 2025Q2

REPORT INFORMATION
  Report Type: Spontaneous
  Country: US (occurrence: US)
  Receive Date: 20250512
  Receipt Date: 20250512
  Transmission Date: 20250717
  Serious: No
  Sender: UCB
  Company Number: US-UCBSA-2024043707

PATIENT
  Age: 75 Year
  Sex: Male

DRUGS (1)
  1. CIMZIA [Suspect]
     Active Substance: CERTOLIZUMAB PEGOL
     Indication: Rheumatoid arthritis
     Dosage: 400 MILLIGRAM, EV 2 WEEKS(QOW)
     Route: 058
     Dates: start: 20240824

REACTIONS (6)
  - Illness [Unknown]
  - Influenza like illness [Unknown]
  - Nausea [Unknown]
  - Pyrexia [Unknown]
  - Feeling of body temperature change [Unknown]
  - Adverse drug reaction [Unknown]

NARRATIVE: CASE EVENT DATE: 20240824
